FAERS Safety Report 19398637 (Version 1)
Quarter: 2021Q2

REPORT INFORMATION
  Report Type: Spontaneous
  Country: US (occurrence: US)
  Receive Date: 20210610
  Receipt Date: 20210610
  Transmission Date: 20210717
  Serious: No
  Sender: FDA-Public Use
  Company Number: None

PATIENT
  Age: 40 Year
  Sex: Female

DRUGS (1)
  1. COSENTYX [Suspect]
     Active Substance: SECUKINUMAB
     Dosage: ?          OTHER DOSE:2 INJECTIONS;OTHER FREQUENCY:OTHER;?
     Route: 058
     Dates: start: 20210610

REACTIONS (2)
  - Rash pruritic [None]
  - Psoriasis [None]

NARRATIVE: CASE EVENT DATE: 20210610
